FAERS Safety Report 5615905-3 (Version None)
Quarter: 2008Q1

REPORT INFORMATION
  Report Type: 
  Country: None (occurrence: None)
  Receive Date: 20080206
  Receipt Date: 20080125
  Transmission Date: 20080703
  Serious: Yes (Other)
  Sender: FDA-Public Use
  Company Number: DE-SANOFI-SYNTHELABO-A04200701617

PATIENT
  Sex: Male

DRUGS (4)
  1. XATRAL [Suspect]
     Indication: CONGENITAL URETHRAL ANOMALY
     Route: 048
     Dates: start: 20071004, end: 20071008
  2. XATRAL [Suspect]
     Indication: MICTURITION DISORDER
     Route: 048
     Dates: start: 20071004, end: 20071008
  3. XATRAL [Suspect]
     Dosage: UNK
     Route: 048
     Dates: start: 20070101
  4. XATRAL [Suspect]
     Dosage: UNK
     Route: 048
     Dates: start: 20070101

REACTIONS (4)
  - GASTRITIS [None]
  - GASTROINTESTINAL PAIN [None]
  - LIPASE INCREASED [None]
  - PANCREATITIS [None]
